FAERS Safety Report 6226642-9 (Version None)
Quarter: 2009Q2

REPORT INFORMATION
  Report Type: 
  Country: None (occurrence: None)
  Receive Date: 20090612
  Receipt Date: 20090519
  Transmission Date: 20091009
  Serious: No
  Sender: FDA-Public Use
  Company Number: US-ABBOTT-09P-163-0574667-00

PATIENT
  Sex: Female
  Weight: 133.93 kg

DRUGS (21)
  1. HUMIRA [Suspect]
     Indication: ANKYLOSING SPONDYLITIS
     Route: 058
     Dates: start: 20090423
  2. HUMIRA [Suspect]
     Indication: CROHN'S DISEASE
  3. LASIX [Concomitant]
     Indication: OEDEMA PERIPHERAL
     Route: 048
  4. COZAAR [Concomitant]
     Indication: BLOOD PRESSURE MANAGEMENT
     Route: 048
  5. ASACOL [Concomitant]
     Indication: CROHN'S DISEASE
     Route: 048
  6. PRILOSEC [Concomitant]
     Indication: GASTROOESOPHAGEAL REFLUX DISEASE
     Dosage: HS
     Route: 048
  7. NEXIUM [Concomitant]
     Indication: GASTROOESOPHAGEAL REFLUX DISEASE
     Route: 048
  8. NEXIUM [Concomitant]
  9. CLARITIN [Concomitant]
     Indication: SEASONAL ALLERGY
     Route: 048
  10. MULTI-VITAMINS [Concomitant]
     Indication: ANAEMIA
     Route: 048
  11. MULTI-VITAMIN [Concomitant]
     Indication: VITAMIN SUPPLEMENTATION
  12. TYLENOL (CAPLET) [Concomitant]
     Indication: BACK PAIN
  13. EPIPEN [Concomitant]
     Indication: ALLERGY TO ARTHROPOD STING
     Route: 058
  14. BECONASE AQ [Concomitant]
     Indication: SEASONAL ALLERGY
     Route: 045
  15. SYNTHROID [Concomitant]
     Indication: THYROIDECTOMY
     Route: 048
  16. SULFACETAMIDE DROPS [Concomitant]
     Indication: EYE INFECTION
     Route: 047
  17. CARAFATE [Concomitant]
     Indication: CROHN'S DISEASE
  18. CARAFATE [Concomitant]
     Indication: GASTROOESOPHAGEAL REFLUX DISEASE
  19. GAVISCON [Concomitant]
     Indication: GASTROOESOPHAGEAL REFLUX DISEASE
     Route: 048
  20. VITAMIN D [Concomitant]
     Indication: VITAMIN SUPPLEMENTATION
     Dosage: 50,000 UNITS
  21. VITAMIN D [Concomitant]
     Indication: VITAMIN D DEFICIENCY

REACTIONS (4)
  - BACK PAIN [None]
  - FATIGUE [None]
  - NASOPHARYNGITIS [None]
  - ORAL DISORDER [None]
